FAERS Safety Report 19957289 (Version 1)
Quarter: 2021Q4

REPORT INFORMATION
  Report Type: Other
  Country: CH (occurrence: CH)
  Receive Date: 20211014
  Receipt Date: 20211014
  Transmission Date: 20220303
  Serious: Yes (Other)
  Sender: FDA-Public Use
  Company Number: CH-B.BRAUN MEDICAL INC.-2120571

PATIENT
  Age: 49 Year
  Sex: Male

DRUGS (1)
  1. CEFTRIAXONE SODIUM [Suspect]
     Active Substance: CEFTRIAXONE SODIUM

REACTIONS (4)
  - Occupational exposure to product [None]
  - Occupational asthma [None]
  - Bronchospasm [None]
  - Anaphylactic reaction [None]
